FAERS Safety Report 5781751-3 (Version None)
Quarter: 2008Q2

REPORT INFORMATION
  Report Type: 
  Country: None (occurrence: None)
  Receive Date: 20080623
  Receipt Date: 20071018
  Transmission Date: 20081010
  Serious: No
  Sender: FDA-Public Use
  Company Number: US-ASTRAZENECA-2007UW24269

PATIENT
  Age: 8 Year
  Sex: Male
  Weight: 41.7 kg

DRUGS (2)
  1. RHINOCORT [Suspect]
     Indication: NASAL INFLAMMATION
     Dosage: 1 SPRAY EACH NOSTRIL Q8-12H
     Route: 045
  2. POLYHIST DM [Concomitant]

REACTIONS (1)
  - DIARRHOEA [None]
